FAERS Safety Report 20708002 (Version 1)
Quarter: 2022Q2

REPORT INFORMATION
  Report Type: Spontaneous
  Country: US (occurrence: US)
  Receive Date: 20220414
  Receipt Date: 20220414
  Transmission Date: 20220720
  Serious: No
  Sender: FDA-Public Use
  Company Number: US-AMGEN-USASP2022055926

PATIENT
  Age: 70 Year
  Sex: Female

DRUGS (1)
  1. REPATHA [Suspect]
     Active Substance: EVOLOCUMAB
     Indication: Blood cholesterol increased
     Dosage: 140 MILLIGRAM, Q2WK
     Route: 065
     Dates: start: 2021

REACTIONS (6)
  - Anxiety [Not Recovered/Not Resolved]
  - Blood cholesterol increased [Unknown]
  - Asthma-chronic obstructive pulmonary disease overlap syndrome [Not Recovered/Not Resolved]
  - Product dose omission issue [Unknown]
  - Sinus disorder [Unknown]
  - Device difficult to use [Unknown]

NARRATIVE: CASE EVENT DATE: 20220201
